FAERS Safety Report 18045163 (Version 2)
Quarter: 2020Q3

REPORT INFORMATION
  Report Type: Spontaneous
  Country: DE (occurrence: DE)
  Receive Date: 20200720
  Receipt Date: 20200805
  Transmission Date: 20201103
  Serious: Yes (Other)
  Sender: FDA-Public Use
  Company Number: NVSC2020DE199729

PATIENT
  Age: 36 Year
  Sex: Female

DRUGS (2)
  1. OLANZAPINE. [Suspect]
     Active Substance: OLANZAPINE
     Indication: SCHIZOPHRENIA
     Dosage: UNK
     Route: 065
     Dates: start: 2018, end: 20200401
  2. RISPERIDON [Concomitant]
     Active Substance: RISPERIDONE
     Indication: SCHIZOPHRENIA
     Dosage: UNK
     Route: 065
     Dates: start: 2018, end: 20200401

REACTIONS (16)
  - Visual impairment [Unknown]
  - Blood prolactin increased [Recovering/Resolving]
  - Suicidal ideation [Unknown]
  - Bradyphrenia [Unknown]
  - General physical condition abnormal [Unknown]
  - Hypoacusis [Unknown]
  - Skin discomfort [Unknown]
  - Weight increased [Not Recovered/Not Resolved]
  - Incontinence [Unknown]
  - Hypertrichosis [Not Recovered/Not Resolved]
  - Social avoidant behaviour [Unknown]
  - Decreased gait velocity [Unknown]
  - Intentional self-injury [Unknown]
  - Extrapyramidal disorder [Not Recovered/Not Resolved]
  - Amenorrhoea [Not Recovered/Not Resolved]
  - Swelling face [Recovering/Resolving]
